FAERS Safety Report 10057232 (Version 2)
Quarter: 2014Q2

REPORT INFORMATION
  Report Type: Spontaneous
  Country: US (occurrence: US)
  Receive Date: 20140403
  Receipt Date: 20140523
  Transmission Date: 20141212
  Serious: No
  Sender: FDA-Public Use
  Company Number: US-TEVA-473128USA

PATIENT
  Age: 17 Year
  Sex: Female
  Weight: 73.55 kg

DRUGS (2)
  1. PARAGARD 380A [Suspect]
     Indication: CONTRACEPTION
     Dates: start: 20140318, end: 20140319
  2. PRENATAL VITAMINS [Concomitant]
     Indication: POSTPARTUM STATE

REACTIONS (1)
  - Device expulsion [Recovered/Resolved]
